FAERS Safety Report 23106317 (Version 4)
Quarter: 2023Q4

REPORT INFORMATION
  Report Type: Spontaneous
  Country: HK (occurrence: HK)
  Receive Date: 20231025
  Receipt Date: 20231113
  Transmission Date: 20240110
  Serious: Yes (Hospitalization)
  Sender: FDA-Public Use
  Company Number: HK-SEATTLE GENETICS-2023SGN11029

PATIENT
  Age: 56 Year
  Sex: Male
  Weight: 72 kg

DRUGS (3)
  1. TUKYSA [Suspect]
     Active Substance: TUCATINIB
     Indication: Colorectal cancer metastatic
     Dosage: 300 MILLIGRAM (MG), ORALLY (PO), TWICE A DAY (BID)
     Route: 048
     Dates: start: 20230808
  2. TRASTUZUMAB [Concomitant]
     Active Substance: TRASTUZUMAB
     Indication: Colorectal cancer metastatic
     Dosage: 8 MILLIGRAM/KILOGRAM ON CYCLE 1 DAY 1 (C1D1)
     Route: 065
  3. TRASTUZUMAB [Concomitant]
     Active Substance: TRASTUZUMAB
     Dosage: 6 MILLIGRAM/KILOGRAM, Q3W
     Route: 065

REACTIONS (2)
  - Blood creatinine increased [Not Recovered/Not Resolved]
  - Product use in unapproved indication [Unknown]

NARRATIVE: CASE EVENT DATE: 20230828
